FAERS Safety Report 6898176-X (Version None)
Quarter: 2010Q3

REPORT INFORMATION
  Report Type: 
  Country: None (occurrence: None)
  Receive Date: 20100729
  Receipt Date: 20100715
  Transmission Date: 20110219
  Serious: Yes (Other)
  Sender: FDA-Public Use
  Company Number: 236573J08USA

PATIENT
  Age: 60 Year
  Sex: Female

DRUGS (4)
  1. REBIF [Suspect]
     Indication: MULTIPLE SCLEROSIS
     Dosage: 44 MCG, 3 IN 1 WK, SUBCUTANEOUS
     Route: 057
  2. URSODIOL [Concomitant]
  3. WELCHOL [Concomitant]
  4. TYLENOL (COTYLENOL) [Concomitant]

REACTIONS (10)
  - BALANCE DISORDER [None]
  - BASEDOW'S DISEASE [None]
  - DIPLOPIA [None]
  - DIZZINESS [None]
  - FALL [None]
  - GAIT DISTURBANCE [None]
  - INJECTION SITE MASS [None]
  - NUCLEAR MAGNETIC RESONANCE IMAGING ABNORMAL [None]
  - TREMOR [None]
  - WRIST FRACTURE [None]
